FAERS Safety Report 7411054-2 (Version None)
Quarter: 2011Q2

REPORT INFORMATION
  Report Type: 
  Country: None (occurrence: None)
  Receive Date: 20110413
  Receipt Date: 20110406
  Transmission Date: 20111010
  Serious: Yes (Hospitalization)
  Sender: FDA-Public Use
  Company Number: PL-ASTELLAS-2011EU001437

PATIENT
  Sex: Female
  Weight: 18 kg

DRUGS (3)
  1. CORTICOSTEROID NOS [Concomitant]
     Indication: DERMATITIS ATOPIC
     Dosage: UNK
     Route: 061
  2. TACROLIMUS [Suspect]
     Indication: DERMATITIS ATOPIC
     Dosage: 0.1 %, UNKNOWN/D
     Route: 065
     Dates: start: 20090901
  3. PIMECROLIMUS [Concomitant]
     Indication: DERMATITIS ATOPIC
     Dosage: UNK
     Route: 065
     Dates: start: 20090701

REACTIONS (3)
  - PYREXIA [None]
  - PHARYNGITIS [None]
  - FEBRILE CONVULSION [None]
